FAERS Safety Report 4363054-7 (Version None)
Quarter: 2004Q2

REPORT INFORMATION
  Report Type: 
  Country: None (occurrence: None)
  Receive Date: 20040519
  Receipt Date: 20040517
  Transmission Date: 20050107
  Serious: Yes (Hospitalization)
  Sender: FDA-Public Use
  Company Number: 03-0032 NI

PATIENT
  Age: 70 Year
  Sex: Female

DRUGS (6)
  1. NITROLINGUAL [Suspect]
     Indication: ANGINA PECTORIS
  2. ATENOLOL [Suspect]
     Indication: HYPERTENSION
     Dosage: 200MG, PO
     Route: 048
     Dates: start: 20030806
  3. CARBIUM 200 CARBAMAZEPINE [Suspect]
     Indication: EPILEPSY
     Dosage: 600MG, PO
     Route: 048
  4. ASS 100 HEXAL (ACETYLSALICLSAURE) [Concomitant]
  5. DIOVAN [Concomitant]
  6. NITRENDIPINE(NITRENDIINE) [Concomitant]

REACTIONS (1)
  - BRADYCARDIA [None]
